FAERS Safety Report 4494252-X (Version None)
Quarter: 2004Q4

REPORT INFORMATION
  Report Type: 
  Country: None (occurrence: None)
  Receive Date: 20041104
  Receipt Date: 20041104
  Transmission Date: 20050328
  Serious: Yes (Life-Threatening, Hospitalization)
  Sender: FDA-Public Use
  Company Number: None

PATIENT
  Age: 46 Year
  Sex: Male
  Weight: 76.6579 kg

DRUGS (6)
  1. PEG INTERFERON [Suspect]
     Indication: HEPATITIS C
     Dosage: 150 MCG WEEKLY SUBCUTANEOUS
     Route: 058
     Dates: start: 20040130, end: 20041001
  2. RIBAVIRIN [Suspect]
     Dosage: 600 MG BID ORAL
     Route: 048
     Dates: start: 20040130, end: 20041001
  3. ZOLOFT [Concomitant]
  4. ALLEGRA [Concomitant]
  5. VIOXX [Concomitant]
  6. BENICAR [Concomitant]

REACTIONS (4)
  - ACUTE MYELOID LEUKAEMIA [None]
  - FATIGUE [None]
  - NIGHT SWEATS [None]
  - PYREXIA [None]
